FAERS Safety Report 6709658-5 (Version None)
Quarter: 2010Q2

REPORT INFORMATION
  Report Type: 
  Country: None (occurrence: None)
  Receive Date: 20100503
  Receipt Date: 20100503
  Transmission Date: 20101027
  Serious: Yes (Other)
  Sender: FDA-Public Use
  Company Number: None

PATIENT
  Age: 2 Year
  Sex: Male
  Weight: 17.2367 kg

DRUGS (2)
  1. CHILDREN'S MOTRIN [Suspect]
     Indication: PYREXIA
     Dosage: 1 TSP EVERY 6 HOURS PO
     Route: 048
     Dates: start: 20100422, end: 20100429
  2. CHILDREN'S BENADRYL ALLERGY [Suspect]
     Indication: RASH GENERALISED
     Dosage: 1 TSP EVERY 6 HOURS PO
     Route: 048
     Dates: start: 20100424, end: 20100427

REACTIONS (5)
  - ABDOMINAL PAIN UPPER [None]
  - DECREASED APPETITE [None]
  - IRRITABILITY [None]
  - RASH ERYTHEMATOUS [None]
  - RASH GENERALISED [None]
